FAERS Safety Report 10232681 (Version 3)
Quarter: 2014Q2

REPORT INFORMATION
  Report Type: Spontaneous
  Country: IT (occurrence: IT)
  Receive Date: 20140612
  Receipt Date: 20140627
  Transmission Date: 20141212
  Serious: Yes (Other)
  Sender: FDA-Public Use
  Company Number: PHHY2014IT072122

PATIENT
  Age: 65 Year
  Sex: Female

DRUGS (3)
  1. ZOMETA [Suspect]
     Indication: BREAST CANCER
     Dosage: 4 MG, CYCLIC
     Route: 042
  2. ZOMETA [Suspect]
     Dosage: UNK UKN, UNK
     Route: 042
  3. CYCLOPHOSPHAMIDE [Concomitant]
     Dosage: UNK UKN, UNK

REACTIONS (1)
  - Abscess jaw [Unknown]
